FAERS Safety Report 20910690 (Version 1)
Quarter: 2022Q2

REPORT INFORMATION
  Report Type: Spontaneous
  Country: IT (occurrence: IT)
  Receive Date: 20220603
  Receipt Date: 20220603
  Transmission Date: 20220721
  Serious: Yes (Disabling)
  Sender: FDA-Public Use
  Company Number: IT-MYLANLABS-2022M1039742

PATIENT
  Sex: Female

DRUGS (1)
  1. OLANZAPINE [Suspect]
     Active Substance: OLANZAPINE
     Indication: Product used for unknown indication
     Dosage: UNK (END DATE: AFTER A FEW DAYS FROM THE START OF THERAPY)
     Route: 065

REACTIONS (2)
  - Somnolence [Recovered/Resolved]
  - Therapy cessation [Unknown]
